FAERS Safety Report 24820526 (Version 1)
Quarter: 2025Q1

REPORT INFORMATION
  Report Type: Spontaneous
  Country: CN (occurrence: CN)
  Receive Date: 20250108
  Receipt Date: 20250108
  Transmission Date: 20250409
  Serious: Yes (Disabling)
  Sender: PFIZER
  Company Number: CN-PFIZER INC-PV202500002032

PATIENT
  Age: 75 Year
  Sex: Male
  Weight: 70 kg

DRUGS (4)
  1. METHOTREXATE SODIUM [Suspect]
     Active Substance: METHOTREXATE SODIUM
     Indication: Lymphoma
     Dosage: 3.5 G, 1X/DAY
     Route: 041
     Dates: start: 20241220, end: 20241220
  2. CYCLOPHOSPHAMIDE [Suspect]
     Active Substance: CYCLOPHOSPHAMIDE
     Indication: Lymphoma
     Dosage: 1 G, 1X/DAY
     Route: 041
     Dates: start: 20241219, end: 20241219
  3. SODIUM CHLORIDE [Concomitant]
     Active Substance: SODIUM CHLORIDE
     Indication: Vehicle solution use
     Dosage: 100 ML, 1X/DAY
     Route: 041
     Dates: start: 20241219, end: 20241219
  4. DEXTROSE [Concomitant]
     Active Substance: DEXTROSE MONOHYDRATE
     Indication: Vehicle solution use
     Dosage: 500 ML, 1X/DAY
     Route: 041
     Dates: start: 20241220, end: 20241220

REACTIONS (2)
  - Blood creatinine increased [Recovering/Resolving]
  - Blood urea increased [Recovering/Resolving]

NARRATIVE: CASE EVENT DATE: 20241222
